FAERS Safety Report 6210893-3 (Version None)
Quarter: 2009Q2

REPORT INFORMATION
  Report Type: 
  Country: None (occurrence: None)
  Receive Date: 20090527
  Receipt Date: 20090511
  Transmission Date: 20091009
  Serious: Yes (Hospitalization)
  Sender: FDA-Public Use
  Company Number: 2009S1004175

PATIENT
  Sex: Male

DRUGS (5)
  1. PHOSPHOSODA FLAVOR NOT SPECIFIED [Suspect]
     Indication: COLONOSCOPY
     Dosage: PO
     Route: 048
     Dates: start: 20080129, end: 20080129
  2. ACE INHIBITOR [Concomitant]
  3. ANGIOTENSIN II  ANTAGONISTS [Concomitant]
  4. ....... [Concomitant]
  5. DIURETICS [Concomitant]

REACTIONS (3)
  - DIARRHOEA [None]
  - FATIGUE [None]
  - RENAL FAILURE ACUTE [None]
